FAERS Safety Report 25799316 (Version 1)
Quarter: 2025Q3

REPORT INFORMATION
  Report Type: Spontaneous
  Country: EU (occurrence: EU)
  Receive Date: 20250913
  Receipt Date: 20250913
  Transmission Date: 20251020
  Serious: Yes (Death, Other)
  Sender: AMGEN
  Company Number: EU-AMGEN-AUTSP2025182088

PATIENT

DRUGS (4)
  1. SOTORASIB [Suspect]
     Active Substance: SOTORASIB
     Indication: Neoplasm malignant
     Route: 065
  2. SOTORASIB [Suspect]
     Active Substance: SOTORASIB
     Indication: Metastases to meninges
  3. PATRITUMAB DERUXTECAN [Suspect]
     Active Substance: PATRITUMAB DERUXTECAN
     Indication: Neoplasm malignant
     Route: 040
  4. PATRITUMAB DERUXTECAN [Suspect]
     Active Substance: PATRITUMAB DERUXTECAN
     Indication: Metastases to meninges

REACTIONS (51)
  - Metastases to meninges [Fatal]
  - Neutropenia [Recovered/Resolved]
  - Thrombocytopenia [Recovered/Resolved]
  - Febrile neutropenia [Recovered/Resolved]
  - Ascites [Recovered/Resolved]
  - Seizure [Recovered/Resolved]
  - Abdominal infection [Recovered/Resolved]
  - Interstitial lung disease [Recovered/Resolved]
  - Pulmonary embolism [Recovered/Resolved]
  - Neoplasm malignant [Recovered/Resolved]
  - Hyperbilirubinaemia [Recovered/Resolved]
  - Lymphopenia [Recovered/Resolved]
  - Ill-defined disorder [Recovered/Resolved]
  - Administration site reaction [Recovered/Resolved]
  - Anaemia [Recovered/Resolved]
  - Asthenia [Recovered/Resolved]
  - Fatigue [Recovered/Resolved]
  - Diarrhoea [Recovered/Resolved]
  - Constipation [Recovered/Resolved]
  - Vomiting [Recovered/Resolved]
  - Headache [Recovered/Resolved]
  - Dizziness [Recovered/Resolved]
  - Disturbance in attention [Recovered/Resolved]
  - Alanine aminotransferase increased [Recovered/Resolved]
  - Aspartate aminotransferase increased [Recovered/Resolved]
  - Transaminases increased [Recovered/Resolved]
  - Metabolic disorder [Recovered/Resolved]
  - Nutritional condition abnormal [Recovered/Resolved]
  - Hypocalcaemia [Recovered/Resolved]
  - Skin disorder [Recovered/Resolved]
  - Mucocutaneous disorder [Recovered/Resolved]
  - Alopecia [Recovered/Resolved]
  - Infection [Recovered/Resolved]
  - Infestation [Recovered/Resolved]
  - Moraxella infection [Recovered/Resolved]
  - Respiratory disorder [Recovered/Resolved]
  - Adverse event [Recovered/Resolved]
  - Mediastinal disorder [Recovered/Resolved]
  - Dyspnoea [Recovered/Resolved]
  - Musculoskeletal disorder [Recovered/Resolved]
  - Connective tissue disorder [Recovered/Resolved]
  - Muscular weakness [Recovered/Resolved]
  - Fistula [Recovered/Resolved]
  - Jaundice [Recovered/Resolved]
  - Injury [Recovered/Resolved]
  - Toxicity to various agents [Recovered/Resolved]
  - Procedural complication [Recovered/Resolved]
  - Fall [Recovered/Resolved]
  - Benign neoplasm [Recovered/Resolved]
  - Neoplasm [Recovered/Resolved]
  - Cancer pain [Recovered/Resolved]
